FAERS Safety Report 10470600 (Version 2)
Quarter: 2020Q4

REPORT INFORMATION
  Report Type: Spontaneous
  Country: IT (occurrence: IT)
  Receive Date: 20140923
  Receipt Date: 20201112
  Transmission Date: 20210113
  Serious: Yes (Other)
  Sender: FDA-Public Use
  Company Number: PHHY2014IT119763

PATIENT
  Age: 44 Year
  Sex: Female

DRUGS (5)
  1. CIPROFLOXACIN. [Suspect]
     Active Substance: CIPROFLOXACIN
     Indication: PRODUCT USED FOR UNKNOWN INDICATION
     Dosage: 250 MG, BID
     Route: 065
  2. CICLOSPORIN [Suspect]
     Active Substance: CYCLOSPORINE
     Indication: SYSTEMIC LUPUS ERYTHEMATOSUS
     Dosage: UNK
     Route: 065
  3. QUINACRINE [Concomitant]
     Active Substance: QUINACRINE
     Indication: PRODUCT USED FOR UNKNOWN INDICATION
     Dosage: UNK
     Route: 065
  4. PARACETAMOL [Suspect]
     Active Substance: ACETAMINOPHEN
     Indication: PYREXIA
     Dosage: 4 G, PER DAY
     Route: 065
  5. AMOXICILLIN,CLAVULANIC ACID [Suspect]
     Active Substance: AMOXICILLIN\CLAVULANIC ACID
     Indication: PYREXIA
     Dosage: 3 G, PER DAY
     Route: 065

REACTIONS (16)
  - Proteinuria [Recovering/Resolving]
  - Drug ineffective [Unknown]
  - Drug-induced liver injury [Recovered/Resolved]
  - Systemic lupus erythematosus [Unknown]
  - Urinary tract infection [Recovering/Resolving]
  - Alanine aminotransferase increased [Recovered/Resolved]
  - Back pain [Recovering/Resolving]
  - Chills [Recovering/Resolving]
  - Leukocyturia [Recovering/Resolving]
  - Transaminases increased [Recovered/Resolved]
  - Pyrexia [Recovering/Resolving]
  - Rash erythematous [Recovering/Resolving]
  - Arthralgia [Recovering/Resolving]
  - Cholelithiasis [Unknown]
  - Hepatic necrosis [Recovered/Resolved]
  - Hepatitis acute [Recovered/Resolved]
